FAERS Safety Report 20379321 (Version 2)
Quarter: 2022Q3

REPORT INFORMATION
  Report Type: Spontaneous
  Country: US (occurrence: US)
  Receive Date: 20220126
  Receipt Date: 20220728
  Transmission Date: 20221027
  Serious: No
  Sender: FDA-Public Use
  Company Number: US-DSJP-DSU-2022-102606

PATIENT
  Age: 80 Year
  Sex: Male

DRUGS (1)
  1. ENHERTU [Suspect]
     Active Substance: FAM-TRASTUZUMAB DERUXTECAN-NXKI
     Indication: Oesophageal carcinoma
     Dosage: 6.4 MG/KG, ONCE EVERY 3 WK
     Route: 042

REACTIONS (2)
  - Anaemia macrocytic [Unknown]
  - Off label use [Not Recovered/Not Resolved]
